FAERS Safety Report 10554108 (Version 1)
Quarter: 2014Q4

REPORT INFORMATION
  Report Type: Spontaneous
  Country: CA (occurrence: CA)
  Receive Date: 20141030
  Receipt Date: 20141030
  Transmission Date: 20150529
  Serious: Yes (Other)
  Sender: FDA-Public Use
  Company Number: CA-JNJFOC-20140923679

PATIENT
  Sex: Male

DRUGS (1)
  1. VERMOX [Suspect]
     Active Substance: MEBENDAZOLE
     Indication: HELMINTHIC INFECTION
     Dosage: FOR 3 DAYS
     Route: 048
     Dates: start: 20140214

REACTIONS (4)
  - Illusion [Recovered/Resolved]
  - Hypersensitivity [Recovered/Resolved]
  - Abnormal behaviour [Recovered/Resolved]
  - Vasodilatation [Recovered/Resolved]

NARRATIVE: CASE EVENT DATE: 2014
